FAERS Safety Report 21129718 (Version 1)
Quarter: 2022Q3

REPORT INFORMATION
  Report Type: Spontaneous
  Country: JP (occurrence: JP)
  Receive Date: 20220726
  Receipt Date: 20220726
  Transmission Date: 20221027
  Serious: Yes (Other)
  Sender: FDA-Public Use
  Company Number: JP-SA-2022SA288431

PATIENT
  Age: 54 Year
  Sex: Female

DRUGS (2)
  1. DUPILUMAB [Suspect]
     Active Substance: DUPILUMAB
     Indication: Dermatitis atopic
     Dosage: UNK UNK, QOW
  2. DUPILUMAB [Suspect]
     Active Substance: DUPILUMAB
     Dosage: UNK UNK, Q3W

REACTIONS (6)
  - Chronic cutaneous lupus erythematosus [Recovering/Resolving]
  - Rash macular [Recovering/Resolving]
  - Skin plaque [Recovering/Resolving]
  - Ulcer [Recovering/Resolving]
  - Rash [Recovering/Resolving]
  - Off label use [Recovering/Resolving]
